FAERS Safety Report 6133330-6 (Version None)
Quarter: 2009Q1

REPORT INFORMATION
  Report Type: 
  Country: None (occurrence: None)
  Receive Date: 20090326
  Receipt Date: 20090318
  Transmission Date: 20090719
  Serious: Yes (Other)
  Sender: FDA-Public Use
  Company Number: NO-AVENTIS-200912717GDDC

PATIENT

DRUGS (8)
  1. INSULIN GLARGINE [Suspect]
     Route: 058
  2. OPTIPEN (INSULIN PUMP) [Suspect]
  3. CODE UNBROKEN [Suspect]
     Route: 048
  4. ACETYLSALICYLIC ACID [Concomitant]
     Indication: CORONARY ARTERY DISEASE
     Dates: start: 20040201
  5. BISOPROLOL FUMARATE [Concomitant]
     Indication: CORONARY ARTERY DISEASE
     Dosage: DOSE QUANTITY: 7.5
     Dates: start: 20040201
  6. SIMVASTATIN [Concomitant]
     Indication: CORONARY ARTERY DISEASE
     Dosage: DOSE QUANTITY: 20
     Dates: start: 20040201
  7. ENALAPRIL [Concomitant]
     Indication: HYPERTENSION
     Dosage: DOSE QUANTITY: 20
     Dates: start: 20040201
  8. HYDROCHLOROTHIAZIDE [Concomitant]
     Indication: HYPERTENSION
     Dosage: DOSE QUANTITY: 6
     Dates: start: 20040201

REACTIONS (4)
  - APRAXIA [None]
  - DIZZINESS [None]
  - DRUG ADMINISTRATION ERROR [None]
  - OVERDOSE [None]
